FAERS Safety Report 8097052-7 (Version None)
Quarter: 2012Q1

REPORT INFORMATION
  Report Type: 
  Country: None (occurrence: None)
  Receive Date: 20120131
  Receipt Date: 20120120
  Transmission Date: 20120608
  Serious: Yes (Hospitalization)
  Sender: FDA-Public Use
  Company Number: US-BAYER-2011-052541

PATIENT
  Age: 20 Year
  Sex: Female
  Weight: 95.692 kg

DRUGS (11)
  1. YASMIN [Suspect]
     Indication: ACNE
     Dosage: UNK
     Dates: start: 20070101, end: 20080101
  2. VANCOMYCIN [Concomitant]
  3. ACETAMINOPHEN [Concomitant]
     Indication: PREMENSTRUAL SYNDROME
  4. CECLOR [Concomitant]
     Dosage: UNK
     Dates: start: 20080724
  5. OMEPRAZOLE [Concomitant]
     Dosage: UNK
     Dates: start: 20080801
  6. BENADRYL [Concomitant]
     Dosage: UNK
     Dates: start: 20080801
  7. DILAUDID [Concomitant]
     Dosage: UNK
     Dates: start: 20080801
  8. PEPCID [Concomitant]
     Dosage: UNK
     Dates: start: 20080801
  9. YASMIN [Suspect]
     Indication: PREMENSTRUAL SYNDROME
  10. PREDNISONE TAB [Concomitant]
     Dosage: UNK
     Dates: start: 20080801
  11. ANALGESICS [Concomitant]
     Indication: PREMENSTRUAL SYNDROME

REACTIONS (3)
  - PAIN [None]
  - DEEP VEIN THROMBOSIS [None]
  - INJURY [None]
